FAERS Safety Report 7383903-8 (Version None)
Quarter: 2011Q1

REPORT INFORMATION
  Report Type: 
  Country: None (occurrence: None)
  Receive Date: 20110330
  Receipt Date: 20110202
  Transmission Date: 20110831
  Serious: No
  Sender: FDA-Public Use
  Company Number: US-MYLANLABS-2011S1002426

PATIENT
  Age: 14 Year
  Sex: Male

DRUGS (4)
  1. PROZAC [Concomitant]
     Indication: OBSESSIVE-COMPULSIVE DISORDER
     Route: 048
     Dates: start: 20070101
  2. RISPERIDONE [Suspect]
     Indication: OBSESSIVE-COMPULSIVE DISORDER
     Route: 048
     Dates: start: 20070101
  3. RISPERIDONE [Suspect]
     Indication: AUTISM
     Route: 048
     Dates: start: 20070101
  4. LAMICTAL [Concomitant]
     Indication: MOOD SWINGS
     Route: 048
     Dates: start: 20070101

REACTIONS (3)
  - HYPOTHYROIDISM [None]
  - WEIGHT INCREASED [None]
  - INCREASED APPETITE [None]
